FAERS Safety Report 7150005-5 (Version None)
Quarter: 2010Q4

REPORT INFORMATION
  Report Type: 
  Country: None (occurrence: None)
  Receive Date: 20101210
  Receipt Date: 20101130
  Transmission Date: 20110411
  Serious: Yes (Death)
  Sender: FDA-Public Use
  Company Number: JP-PFIZER INC-2010098483

PATIENT
  Age: 68 Year
  Sex: Male

DRUGS (24)
  1. NOVASTAN [Suspect]
     Indication: HEPARIN-INDUCED THROMBOCYTOPENIA
     Dosage: 0.2 MCG/KG/MIN
     Route: 041
     Dates: start: 20100523, end: 20100523
  2. HEPARIN SODIUM [Concomitant]
     Dosage: UNK
     Route: 051
     Dates: start: 20100512
  3. WARFARIN [Concomitant]
     Dosage: 3 G, UNK
     Route: 048
     Dates: start: 20100513, end: 20100521
  4. SIGMART [Concomitant]
     Indication: PROPHYLAXIS
     Dosage: 15 MG, UNK
     Route: 048
     Dates: start: 20100513
  5. ANPLAG [Concomitant]
     Dosage: 300 MG, UNK
     Route: 048
     Dates: start: 20100513
  6. SELBEX [Concomitant]
     Indication: PROPHYLAXIS
     Dosage: 3 G, UNK
     Route: 048
     Dates: start: 20100513
  7. ASPIRIN [Concomitant]
     Dosage: 100 MG, UNK
     Route: 048
     Dates: start: 20100513
  8. DILTIAZEM HYDROCHLORIDE [Concomitant]
     Indication: PROPHYLAXIS
     Dosage: 90 MG, UNK
     Route: 048
     Dates: start: 20100513
  9. IMIDAPRIL HYDROCHLORIDE [Concomitant]
     Indication: PROPHYLAXIS
     Dosage: 5 MG, UNK
     Route: 048
     Dates: start: 20100513
  10. LASIX [Concomitant]
     Dosage: 40 MG, UNK
     Route: 048
     Dates: start: 20100513
  11. ENTERONON R [Concomitant]
     Indication: PROPHYLAXIS
     Dosage: 3 G, UNK
     Route: 048
     Dates: start: 20100513
  12. DOPAMINE HYDROCHLORIDE [Concomitant]
     Indication: PROPHYLAXIS
     Dosage: 125 MG, UNK
     Route: 042
     Dates: start: 20100512, end: 20100527
  13. DOBUTREX [Concomitant]
     Indication: PROPHYLAXIS
     Dosage: 125 MG, UNK
     Route: 042
     Dates: start: 20100512, end: 20100527
  14. NOREPINEPHRINE [Concomitant]
     Indication: PROPHYLAXIS
     Dosage: 2 MG, UNK
     Route: 042
     Dates: start: 20100512, end: 20100527
  15. GLYCERYL TRINITRATE [Concomitant]
     Indication: PROPHYLAXIS
     Dosage: 50 MG, UNK
     Route: 042
     Dates: start: 20100512, end: 20100527
  16. CARPERITIDE [Concomitant]
     Indication: PROPHYLAXIS
     Dosage: 2500 MCG
     Route: 042
     Dates: start: 20100512, end: 20100527
  17. LANDIOLOL HYDROCHLORIDE [Concomitant]
     Indication: PROPHYLAXIS
     Dosage: 150 MG, UNK
     Route: 042
     Dates: start: 20100512, end: 20100527
  18. ELASPOL [Concomitant]
     Indication: PROPHYLAXIS
     Dosage: 200 MG, UNK
     Route: 042
     Dates: start: 20100512, end: 20100527
  19. PROPOFOL [Concomitant]
     Indication: SEDATION
     Dosage: 150 MG, UNK
     Route: 042
     Dates: start: 20100512, end: 20100527
  20. FENTANYL [Concomitant]
     Indication: SEDATION
     Dosage: 2 MG, UNK
     Route: 042
     Dates: start: 20100512, end: 20100527
  21. SAXIZON [Concomitant]
     Indication: PROPHYLAXIS
     Dosage: 300 MG, UNK
     Route: 042
     Dates: start: 20100512, end: 20100527
  22. MAGNESIUM SULFATE [Concomitant]
     Indication: PROPHYLAXIS
     Dosage: 3 AMPULES/DAY
     Route: 042
     Dates: start: 20100512, end: 20100527
  23. FLAVITAN [Concomitant]
     Indication: PROPHYLAXIS
     Dosage: 1 AMPULE/DAY
     Route: 042
     Dates: start: 20100512, end: 20100527
  24. PANTOL [Concomitant]
     Indication: PROPHYLAXIS
     Dosage: 1500 MG, UNK
     Route: 042
     Dates: start: 20100512, end: 20100527

REACTIONS (2)
  - COAGULATION TIME PROLONGED [None]
  - INTESTINAL ISCHAEMIA [None]
